FAERS Safety Report 7189912-6 (Version None)
Quarter: 2010Q4

REPORT INFORMATION
  Report Type: 
  Country: None (occurrence: None)
  Receive Date: 20101223
  Receipt Date: 20101221
  Transmission Date: 20110411
  Serious: Yes (Life-Threatening)
  Sender: FDA-Public Use
  Company Number: DE-PAR PHARMACEUTICAL, INC-2010SCPR002359

PATIENT
  Age: 17 Week
  Sex: Female

DRUGS (1)
  1. PROPRANOLOL HCL [Suspect]
     Indication: HAEMANGIOMA
     Dosage: UNK
     Route: 065

REACTIONS (1)
  - HYPERKALAEMIA [None]
